FAERS Safety Report 5659490-9 (Version None)
Quarter: 2008Q1

REPORT INFORMATION
  Report Type: 
  Country: None (occurrence: None)
  Receive Date: 20080311
  Receipt Date: 20080303
  Transmission Date: 20080703
  Serious: Yes (Life-Threatening, Hospitalization, Other)
  Sender: FDA-Public Use
  Company Number: PHBS2008NL03087

PATIENT
  Age: 50 Year
  Sex: Male

DRUGS (3)
  1. DIAZEPAM [Suspect]
     Dosage: 60 MG, UNK
  2. ETHYLENE GLYCOL [Suspect]
     Dosage: MORE THAN 500 ML
  3. DICLOFENAC SODIUM [Suspect]
     Dosage: 12 G, UNK

REACTIONS (13)
  - BLOOD CREATININE INCREASED [None]
  - BLOOD POTASSIUM INCREASED [None]
  - BLOOD PRESSURE INCREASED [None]
  - BODY TEMPERATURE DECREASED [None]
  - CALCIUM IONISED DECREASED [None]
  - COMA [None]
  - HAEMODIALYSIS [None]
  - HYPERGLYCAEMIA [None]
  - HYPERLACTACIDAEMIA [None]
  - INTENTIONAL OVERDOSE [None]
  - LEUKOCYTOSIS [None]
  - METABOLIC ACIDOSIS [None]
  - RENAL FAILURE [None]
